FAERS Safety Report 8512279-5 (Version None)
Quarter: 2012Q3

REPORT INFORMATION
  Report Type: 
  Country: None (occurrence: None)
  Receive Date: 20120716
  Receipt Date: 20120713
  Transmission Date: 20120928
  Serious: Yes (Other)
  Sender: FDA-Public Use
  Company Number: AU-ROCHE-1088281

PATIENT
  Sex: Female

DRUGS (3)
  1. PREDNISOLONE [Concomitant]
  2. ACTEMRA [Suspect]
     Indication: RHEUMATOID ARTHRITIS
     Dosage: 29.6 ML
     Route: 042
     Dates: start: 20120321
  3. INSULIN [Concomitant]
     Indication: DIABETES MELLITUS

REACTIONS (2)
  - WOUND INFECTION [None]
  - LACERATION [None]
